FAERS Safety Report 8539162-3 (Version None)
Quarter: 2012Q3

REPORT INFORMATION
  Report Type: 
  Country: None (occurrence: None)
  Receive Date: 20120726
  Receipt Date: 20120712
  Transmission Date: 20120928
  Serious: Yes (Other)
  Sender: FDA-Public Use
  Company Number: DE-MYLANLABS-2012S1010442

PATIENT
  Age: 52 Year
  Sex: Female
  Weight: 95 kg

DRUGS (1)
  1. RANITIDINE [Suspect]
     Indication: GASTROOESOPHAGEAL REFLUX DISEASE
     Route: 048
     Dates: start: 20110401, end: 20120515

REACTIONS (4)
  - HAEMORRHOIDAL HAEMORRHAGE [None]
  - THROMBOCYTOPENIA [None]
  - EPISTAXIS [None]
  - MENORRHAGIA [None]
